FAERS Safety Report 4582947-9 (Version None)
Quarter: 2005Q1

REPORT INFORMATION
  Report Type: 
  Country: None (occurrence: None)
  Receive Date: 20050127
  Receipt Date: 20041118
  Transmission Date: 20050727
  Serious: No
  Sender: FDA-Public Use
  Company Number: USA040978509

PATIENT
  Age: 14 Year
  Sex: Male

DRUGS (3)
  1. ZYPREXA [Suspect]
     Indication: AFFECTIVE DISORDER
     Dosage: 10 MG DAY
  2. STRATTERA [Suspect]
     Indication: ATTENTION DEFICIT/HYPERACTIVITY DISORDER
     Dosage: 60 MG DAY
  3. TRILEPTAL [Concomitant]

REACTIONS (2)
  - ABDOMINAL PAIN [None]
  - BLOOD URINE [None]
